FAERS Safety Report 17186174 (Version 3)
Quarter: 2019Q4

REPORT INFORMATION
  Report Type: Spontaneous
  Country: US (occurrence: US)
  Receive Date: 20191220
  Receipt Date: 20191226
  Transmission Date: 20200122
  Serious: Yes (Other)
  Sender: FDA-Public Use
  Company Number: US-ARRAY-2019-06970

PATIENT

DRUGS (2)
  1. MEKTOVI [Suspect]
     Active Substance: BINIMETINIB
     Indication: MALIGNANT MELANOMA
  2. BRAFTOVI [Suspect]
     Active Substance: ENCORAFENIB
     Indication: MALIGNANT MELANOMA

REACTIONS (8)
  - Diarrhoea [Unknown]
  - Pain [Unknown]
  - Asthenia [Unknown]
  - Internal haemorrhage [Unknown]
  - Vomiting [Unknown]
  - Joint swelling [Unknown]
  - Fatigue [Unknown]
  - Nausea [Unknown]
